FAERS Safety Report 8895212 (Version 1)
Quarter: 2012Q4

REPORT INFORMATION
  Report Type: 
  Country: US (occurrence: US)
  Receive Date: 20121107
  Receipt Date: 20121107
  Transmission Date: 20130627
  Serious: No
  Sender: FDA-Public Use
  Company Number: US-AMGEN-USASP2011056411

PATIENT
  Sex: Male

DRUGS (2)
  1. ENBREL [Suspect]
     Indication: PSORIATIC ARTHROPATHY
     Dates: start: 20020101
  2. ENBREL [Suspect]
     Indication: PSORIASIS

REACTIONS (4)
  - Stress [Unknown]
  - Psoriatic arthropathy [Not Recovered/Not Resolved]
  - Nasopharyngitis [Unknown]
  - Psoriasis [Not Recovered/Not Resolved]
